FAERS Safety Report 22251162 (Version 5)
Quarter: 2023Q2

REPORT INFORMATION
  Report Type: Spontaneous
  Country: FR (occurrence: FR)
  Receive Date: 20230425
  Receipt Date: 20230616
  Transmission Date: 20230722
  Serious: Yes (Other)
  Sender: FDA-Public Use
  Company Number: FR-PFM-2023-02371

PATIENT
  Age: 69 Year
  Sex: Male

DRUGS (5)
  1. BRAFTOVI [Suspect]
     Active Substance: ENCORAFENIB
     Indication: Malignant melanoma
     Dosage: 450 MG PER DAY
     Route: 065
     Dates: start: 20230118, end: 202301
  2. BRAFTOVI [Suspect]
     Active Substance: ENCORAFENIB
     Dosage: 300 MG DAILY
     Route: 065
     Dates: start: 202301, end: 20230127
  3. BINIMETINIB [Suspect]
     Active Substance: BINIMETINIB
     Indication: Malignant melanoma
     Dosage: 45 MG TWICE A DAY
     Route: 048
     Dates: start: 20230118, end: 20230119
  4. ELIQUIS [Concomitant]
     Active Substance: APIXABAN
     Dosage: UNK
     Route: 065
     Dates: start: 2010
  5. HYDROCORTISONE [Concomitant]
     Active Substance: HYDROCORTISONE
     Dosage: 10 MG PER DAY
     Route: 065
     Dates: start: 2021

REACTIONS (4)
  - Retinal detachment [Recovered/Resolved]
  - Blindness transient [Recovered/Resolved]
  - Hepatic cytolysis [Unknown]
  - Off label use [Unknown]

NARRATIVE: CASE EVENT DATE: 20230119
